FAERS Safety Report 16780654 (Version 2)
Quarter: 2019Q3

REPORT INFORMATION
  Report Type: Spontaneous
  Country: JP (occurrence: JP)
  Receive Date: 20190906
  Receipt Date: 20190906
  Transmission Date: 20191005
  Serious: Yes (Other)
  Sender: FDA-Public Use
  Company Number: JP-PFIZER INC-2019373316

PATIENT
  Age: 74 Year
  Sex: Male

DRUGS (6)
  1. COSOPT [Interacting]
     Active Substance: DORZOLAMIDE HYDROCHLORIDE\TIMOLOL MALEATE
     Indication: OPEN ANGLE GLAUCOMA
     Dosage: UNK, 2X/DAY
     Route: 031
  2. ALPHAGAN P [Interacting]
     Active Substance: BRIMONIDINE TARTRATE
     Indication: OPEN ANGLE GLAUCOMA
     Dosage: UNK, 2X/DAY
     Route: 031
  3. LATANOPROST. [Suspect]
     Active Substance: LATANOPROST
     Indication: OPEN ANGLE GLAUCOMA
     Dosage: UNK UNK, 1X/DAY
     Route: 031
  4. CYANOCOBALAMIN. [Concomitant]
     Active Substance: CYANOCOBALAMIN
     Indication: ASTHENOPIA
     Dosage: UNK
  5. LUMIGAN [Interacting]
     Active Substance: BIMATOPROST
     Indication: OPEN ANGLE GLAUCOMA
     Dosage: UNK UNK, 1X/DAY
  6. ACETAZOLAMIDE. [Interacting]
     Active Substance: ACETAZOLAMIDE
     Indication: INTRAOCULAR PRESSURE INCREASED
     Dosage: 500 MG, DAILY(3 WEEKS)
     Route: 048

REACTIONS (8)
  - Drug interaction [Unknown]
  - Corneal infiltrates [Unknown]
  - Corneal disorder [Unknown]
  - Conjunctivitis [Unknown]
  - Arcus lipoides [Unknown]
  - Corneal opacity [Recovering/Resolving]
  - Conjunctival hyperaemia [Unknown]
  - Corneal neovascularisation [Recovering/Resolving]
